FAERS Safety Report 9948437 (Version 1)
Quarter: 2014Q1

REPORT INFORMATION
  Report Type: Report from Study
  Country: US (occurrence: US)
  Receive Date: 20140303
  Receipt Date: 20140303
  Transmission Date: 20141002
  Serious: No
  Sender: FDA-Public Use
  Company Number: US-ABBVIE-13P-163-1059236-00

PATIENT
  Age: 49 Year
  Sex: Female
  Weight: 81.72 kg

DRUGS (7)
  1. HUMIRA [Suspect]
     Indication: RHEUMATOID ARTHRITIS
     Dates: start: 201301, end: 201302
  2. METHOTREXATE [Concomitant]
     Indication: RHEUMATOID ARTHRITIS
  3. LEVAMIRE [Concomitant]
     Indication: DIABETES MELLITUS
  4. NEURONTIN [Concomitant]
     Indication: PAIN
  5. ROBAXIN [Concomitant]
     Indication: PAIN
  6. ULTRAM [Concomitant]
     Indication: PAIN
  7. FOLIC ACID [Concomitant]
     Indication: DRUG THERAPY

REACTIONS (1)
  - Rheumatoid arthritis [Not Recovered/Not Resolved]
